FAERS Safety Report 5372008-3 (Version None)
Quarter: 2007Q2

REPORT INFORMATION
  Report Type: 
  Country: None (occurrence: None)
  Receive Date: 20070625
  Receipt Date: 20070607
  Transmission Date: 20071010
  Serious: Yes (Hospitalization, Other)
  Sender: FDA-Public Use
  Company Number: 8022581

PATIENT
  Age: 13 Year
  Sex: Female
  Weight: 47 kg

DRUGS (2)
  1. EQUASYM [Suspect]
     Indication: ATTENTION DEFICIT/HYPERACTIVITY DISORDER
  2. EQUASYM [Suspect]
     Indication: ATTENTION DEFICIT/HYPERACTIVITY DISORDER
     Dosage: 600 MG ONCE PO
     Route: 048
     Dates: start: 20070305, end: 20070305

REACTIONS (4)
  - BLOOD PRESSURE INCREASED [None]
  - MUSCLE TWITCHING [None]
  - OVERDOSE [None]
  - TACHYCARDIA [None]
